FAERS Safety Report 5119398-4 (Version None)
Quarter: 2006Q3

REPORT INFORMATION
  Report Type: 
  Country: None (occurrence: None)
  Receive Date: 20060928
  Receipt Date: 20060918
  Transmission Date: 20061208
  Serious: Yes (Other)
  Sender: FDA-Public Use
  Company Number: 2006112808

PATIENT
  Age: 40 Year
  Sex: Female
  Weight: 82.5547 kg

DRUGS (2)
  1. NEOSPORIN [Suspect]
     Indication: SCRATCH
     Dosage: 1-2 TIMES DAILY, TOPICAL
     Route: 061
     Dates: start: 20040201, end: 20051001
  2. NEOSPORIN PLUS PAIN RELIEF MAXIUM  STRENGTH (POLYMYXIN B SULFATE, BACI [Suspect]
     Indication: SCRATCH
     Dosage: 1-2 TIMES DAILY, TOPICAL
     Route: 061
     Dates: start: 20040201, end: 20051001

REACTIONS (11)
  - CONDITION AGGRAVATED [None]
  - DRUG HYPERSENSITIVITY [None]
  - DRY SKIN [None]
  - ERYTHEMA [None]
  - PAIN [None]
  - PAIN IN EXTREMITY [None]
  - SCAR [None]
  - SCRATCH [None]
  - SKIN LESION [None]
  - SKIN SWELLING [None]
  - UNEVALUABLE EVENT [None]
